FAERS Safety Report 20059688 (Version 1)
Quarter: 2021Q4

REPORT INFORMATION
  Report Type: Spontaneous
  Country: BE (occurrence: BE)
  Receive Date: 20211111
  Receipt Date: 20211111
  Transmission Date: 20220303
  Serious: Yes (Hospitalization, Other)
  Sender: FDA-Public Use
  Company Number: BE-ABBVIE-21K-013-4156661-00

PATIENT
  Age: 48 Year
  Sex: Male

DRUGS (7)
  1. VALPROIC ACID [Interacting]
     Active Substance: VALPROIC ACID
     Indication: Epilepsy
     Route: 065
  2. VALPROIC ACID [Interacting]
     Active Substance: VALPROIC ACID
     Indication: Epilepsy
  3. MEROPENEM [Interacting]
     Active Substance: MEROPENEM
     Indication: Campylobacter infection
     Dosage: OVER THREE HOURS, THREE TIMES DAILY
     Route: 065
  4. TEMOZOLOMIDE [Suspect]
     Active Substance: TEMOZOLOMIDE
     Indication: Anaplastic astrocytoma
     Dosage: QCY
     Route: 048
     Dates: start: 2019
  5. LEVETIRACETAM [Concomitant]
     Active Substance: LEVETIRACETAM
     Indication: Product used for unknown indication
  6. CEFTRIAXONE [Concomitant]
     Active Substance: CEFTRIAXONE
     Indication: Product used for unknown indication
  7. ACYCLOVIR [Concomitant]
     Active Substance: ACYCLOVIR
     Indication: Product used for unknown indication

REACTIONS (6)
  - Campylobacter infection [Recovering/Resolving]
  - Generalised tonic-clonic seizure [Unknown]
  - Underdose [Unknown]
  - Inhibitory drug interaction [Unknown]
  - Drug level decreased [Unknown]
  - Drug interaction [Unknown]
